FAERS Safety Report 20610650 (Version 4)
Quarter: 2023Q2

REPORT INFORMATION
  Report Type: Spontaneous
  Country: US (occurrence: US)
  Receive Date: 20220318
  Receipt Date: 20230608
  Transmission Date: 20230722
  Serious: Yes (Death, Hospitalization)
  Sender: FDA-Public Use
  Company Number: US-Albireo AB-2022ALB000049

PATIENT
  Age: 2 Year
  Sex: Male
  Weight: 11.5 kg

DRUGS (6)
  1. BYLVAY [Suspect]
     Active Substance: ODEVIXIBAT
     Indication: Progressive familial intrahepatic cholestasis
     Route: 048
     Dates: start: 20210910
  2. RIFAMPIN [Concomitant]
     Active Substance: RIFAMPIN
  3. VITAMINS [Concomitant]
     Active Substance: VITAMINS
     Dosage: 9 MG/15 ML LIQUID
  4. VITAMIN E [Concomitant]
     Active Substance: .ALPHA.-TOCOPHEROL
     Dosage: 100% LIQUID
  5. Vitamin D-400 [Concomitant]
     Route: 001
  6. URSODIOL [Concomitant]
     Active Substance: URSODIOL

REACTIONS (2)
  - Hepatocellular carcinoma [Fatal]
  - Metastases to lung [Fatal]
